FAERS Safety Report 13651762 (Version 1)
Quarter: 2017Q2

REPORT INFORMATION
  Report Type: Spontaneous
  Country: US (occurrence: US)
  Receive Date: 20170614
  Receipt Date: 20170614
  Transmission Date: 20170830
  Serious: Yes (Other)
  Sender: FDA-Public Use
  Company Number: US-REGENERON PHARMACEUTICALS, INC.-2017-16844

PATIENT

DRUGS (4)
  1. EYLEA [Suspect]
     Active Substance: AFLIBERCEPT
     Indication: DIABETIC RETINAL OEDEMA
     Dosage: FIRST EYLEA INJECTION
  2. EYLEA [Suspect]
     Active Substance: AFLIBERCEPT
     Dosage: SECOND SHOT
  3. EYLEA [Suspect]
     Active Substance: AFLIBERCEPT
     Dosage: FIFTH INJECTION
     Dates: start: 201705, end: 201705
  4. EYLEA [Suspect]
     Active Substance: AFLIBERCEPT
     Dosage: THIRD SHOT

REACTIONS (6)
  - Cerebrovascular accident [Unknown]
  - Eye haemorrhage [Unknown]
  - Eye disorder [Unknown]
  - Vision blurred [Unknown]
  - Drug effect incomplete [Unknown]
  - Blood pressure inadequately controlled [Unknown]

NARRATIVE: CASE EVENT DATE: 2017
